FAERS Safety Report 21661744 (Version 1)
Quarter: 2022Q4

REPORT INFORMATION
  Report Type: Spontaneous
  Country: US (occurrence: US)
  Receive Date: 20221130
  Receipt Date: 20221130
  Transmission Date: 20230113
  Serious: No
  Sender: FDA-Public Use
  Company Number: US-ABBVIE-4217804

PATIENT
  Sex: Female

DRUGS (1)
  1. IMBRUVICA [Suspect]
     Active Substance: IBRUTINIB
     Indication: Product used for unknown indication
     Route: 048
     Dates: start: 20220211

REACTIONS (4)
  - Diarrhoea [Recovered/Resolved]
  - Paranasal sinus hypersecretion [Recovered/Resolved]
  - Gastrointestinal disorder [Recovered/Resolved]
  - Sneezing [Recovered/Resolved]
